FAERS Safety Report 5116883-6 (Version None)
Quarter: 2006Q3

REPORT INFORMATION
  Report Type: 
  Country: None (occurrence: None)
  Receive Date: 20060928
  Receipt Date: 20060922
  Transmission Date: 20061208
  Serious: Yes (Other)
  Sender: FDA-Public Use
  Company Number: 2006UW18603

PATIENT
  Age: 72 Year
  Sex: Female
  Weight: 59.9 kg

DRUGS (8)
  1. ARIMIDEX [Suspect]
     Indication: BREAST CANCER FEMALE
     Route: 048
  2. FOSAMAX [Concomitant]
  3. ZANTAC [Concomitant]
  4. SYNTHROID [Concomitant]
  5. TRAZODONE HCL [Concomitant]
  6. FLEXERIL [Concomitant]
  7. WARFARIN SODIUM [Concomitant]
  8. MS CONTIN [Concomitant]

REACTIONS (1)
  - RESORPTION BONE INCREASED [None]
